FAERS Safety Report 9150648 (Version 1)
Quarter: 2013Q1

REPORT INFORMATION
  Report Type: Spontaneous
  Country: GB (occurrence: GB)
  Receive Date: 20130308
  Receipt Date: 20130308
  Transmission Date: 20140127
  Serious: Yes (Disabling)
  Sender: FDA-Public Use
  Company Number: GB-009507513-1303GBR002424

PATIENT
  Age: 59 Year
  Sex: Female
  Weight: 76.2 kg

DRUGS (13)
  1. LOSARTAN POTASSIUM [Suspect]
     Dosage: UNK
     Route: 048
  2. AMITRIPTYLINE HYDROCHLORIDE [Concomitant]
     Dosage: UNK
     Dates: start: 20121108
  3. ASPIRIN [Concomitant]
     Dosage: UNK
     Dates: start: 20121211
  4. BISOPROLOL [Concomitant]
     Dosage: UNK
     Dates: start: 20121211
  5. IBUPROFEN [Concomitant]
     Dosage: UNK
     Dates: start: 20121116, end: 20121214
  6. OMEPRAZOLE [Concomitant]
     Dosage: UNK
     Dates: start: 20121108
  7. ACETAMINOPHEN [Concomitant]
     Dosage: UNK
     Dates: start: 20121211
  8. RAMIPRIL [Concomitant]
     Dosage: UNK
     Dates: start: 20121211
  9. SIMVASTATIN [Concomitant]
     Dosage: UNK
  10. TEMAZEPAM [Concomitant]
     Dosage: UNK
     Dates: start: 20121211, end: 20130108
  11. TICAGRELOR [Concomitant]
     Dosage: UNK
     Dates: start: 20121211
  12. TRAMADOL HYDROCHLORIDE [Concomitant]
     Dosage: UNK
     Dates: start: 20121108
  13. NITROGLYCERIN [Suspect]
     Dosage: UNK
     Dates: start: 20130131

REACTIONS (2)
  - Sneezing [Not Recovered/Not Resolved]
  - Cough [Unknown]
